FAERS Safety Report 8104672-X (Version None)
Quarter: 2012Q1

REPORT INFORMATION
  Report Type: 
  Country: None (occurrence: None)
  Receive Date: 20120201
  Receipt Date: 20120127
  Transmission Date: 20120608
  Serious: Yes (Other)
  Sender: FDA-Public Use
  Company Number: JP-PFIZER INC-2011313484

PATIENT
  Age: 50 Year
  Sex: Female

DRUGS (4)
  1. LYRICA [Suspect]
     Dosage: 225 MG/DAY, 150 MG IN THE MORNING AND 75 MG AT NIGHT
     Route: 048
  2. LYRICA [Suspect]
     Dosage: 150 MG, 2X/DAY
     Route: 048
     Dates: start: 20111201, end: 20120101
  3. LYRICA [Suspect]
     Dosage: 150 MG DAILY
     Route: 048
     Dates: start: 20111206, end: 20111213
  4. LOXONIN [Concomitant]

REACTIONS (2)
  - HAEMORRHAGE [None]
  - CONTUSION [None]
